FAERS Safety Report 8821412 (Version 1)
Quarter: 2012Q4

REPORT INFORMATION
  Report Type: Report from Study
  Country: NL (occurrence: NL)
  Receive Date: 20121002
  Receipt Date: 20121002
  Transmission Date: 20130627
  Serious: Yes (Death, Other)
  Sender: FDA-Public Use
  Company Number: NL-CELGENEUS-114-21880-12081135

PATIENT
  Sex: Female

DRUGS (2)
  1. REVLIMID [Suspect]
     Indication: CLL
     Route: 048
  2. REVLIMID [Suspect]
     Route: 048

REACTIONS (5)
  - Pseudomonal sepsis [Fatal]
  - Anaemia [Unknown]
  - Leukopenia [Unknown]
  - Diarrhoea [Unknown]
  - Pyrexia [Unknown]
